FAERS Safety Report 8786551 (Version 3)
Quarter: 2013Q4

REPORT INFORMATION
  Report Type: Spontaneous
  Country: TR (occurrence: TR)
  Receive Date: 20120914
  Receipt Date: 20131122
  Transmission Date: 20140711
  Serious: Yes (Other)
  Sender: FDA-Public Use
  Company Number: TR-009507513-1209TUR004422

PATIENT
  Age: 48 Year
  Sex: Female
  Weight: 70 kg

DRUGS (2)
  1. SINGULAIR 10MG FILM TABLETS [Suspect]
     Dosage: 10 MG, QD
     Route: 048
     Dates: start: 2005, end: 2012
  2. DELIX (RAMIPRIL) [Concomitant]
     Dosage: 2.5 MG, QD
     Dates: start: 2009

REACTIONS (1)
  - Breast enlargement [Not Recovered/Not Resolved]
